FAERS Safety Report 13379536 (Version 2)
Quarter: 2017Q1

REPORT INFORMATION
  Report Type: Spontaneous
  Country: US (occurrence: US)
  Receive Date: 20170328
  Receipt Date: 20170328
  Transmission Date: 20170429
  Serious: Yes (Life-Threatening, Hospitalization, Other)
  Sender: FDA-Public Use
  Company Number: US-BRISTOL-MYERS SQUIBB COMPANY-BMS-2017-026167

PATIENT
  Sex: Female

DRUGS (1)
  1. IPILIMUMAB [Suspect]
     Active Substance: IPILIMUMAB
     Indication: MALIGNANT MELANOMA
     Dosage: 10 MG/KG, Q3WK
     Route: 042

REACTIONS (10)
  - Thrombocytopenia [Unknown]
  - Toxicity to various agents [Unknown]
  - Rash pruritic [Unknown]
  - Transaminases increased [Unknown]
  - Fatigue [Unknown]
  - Hyperglycaemia [Unknown]
  - Microcytic anaemia [Unknown]
  - Otitis externa [Unknown]
  - Hypophagia [Unknown]
  - Nausea [Unknown]
